FAERS Safety Report 16838821 (Version 3)
Quarter: 2023Q2

REPORT INFORMATION
  Report Type: Spontaneous
  Country: US (occurrence: US)
  Receive Date: 20190923
  Receipt Date: 20230418
  Transmission Date: 20230722
  Serious: Yes (Death, Hospitalization, Other)
  Sender: FDA-Public Use
  Company Number: US-GILEAD-2019-0429434

PATIENT
  Sex: Male

DRUGS (7)
  1. VIREAD [Suspect]
     Active Substance: TENOFOVIR DISOPROXIL FUMARATE
     Indication: Hepatitis B
     Dosage: UNK
     Route: 048
     Dates: start: 2009, end: 20180407
  2. SPIRONOLACTONE [Concomitant]
     Active Substance: SPIRONOLACTONE
  3. LACTULOSE [Concomitant]
     Active Substance: LACTULOSE
  4. XIFAXAN [Concomitant]
     Active Substance: RIFAXIMIN
  5. NADOLOL [Concomitant]
     Active Substance: NADOLOL
  6. ALPRAZOLAM [Concomitant]
     Active Substance: ALPRAZOLAM
  7. ZINC [Concomitant]
     Active Substance: ZINC

REACTIONS (9)
  - Acute kidney injury [Fatal]
  - Nephrolithiasis [Unknown]
  - Blood creatinine increased [Unknown]
  - Injury [Unknown]
  - Pain [Unknown]
  - Emotional distress [Unknown]
  - Anxiety [Unknown]
  - Anhedonia [Unknown]
  - Economic problem [Not Recovered/Not Resolved]

NARRATIVE: CASE EVENT DATE: 20170101
